FAERS Safety Report 5152580-9 (Version None)
Quarter: 2006Q4

REPORT INFORMATION
  Report Type: 
  Country: None (occurrence: None)
  Receive Date: 20061109
  Receipt Date: 20061027
  Transmission Date: 20070319
  Serious: Yes (Other)
  Sender: FDA-Public Use
  Company Number: 2006116458

PATIENT
  Sex: Female

DRUGS (6)
  1. LYRICA [Suspect]
     Indication: DIABETIC NEUROPATHY
     Dosage: 150 MG (150 MG, 1 IN 1 D), ORAL
     Route: 048
     Dates: start: 20050428, end: 20050929
  2. DIGITOXIN TAB [Concomitant]
  3. DIURAL (FUROSEMIDE) [Concomitant]
  4. GLUCOPHAGE [Concomitant]
  5. LIPITOR [Concomitant]
  6. INSULIN INSULATARD (INSULIN INJECTION, ISOPHANE) [Concomitant]

REACTIONS (5)
  - BALANCE DISORDER [None]
  - BRADYPHRENIA [None]
  - DIZZINESS [None]
  - FATIGUE [None]
  - FEELING ABNORMAL [None]
